FAERS Safety Report 4705212-5 (Version None)
Quarter: 2005Q2

REPORT INFORMATION
  Report Type: 
  Country: None (occurrence: None)
  Receive Date: 20050630
  Receipt Date: 20050630
  Transmission Date: 20051028
  Serious: Yes (Other)
  Sender: FDA-Public Use
  Company Number: None

PATIENT
  Age: 54 Year
  Sex: Male
  Weight: 54.4316 kg

DRUGS (1)
  1. EZETIMIBE [Suspect]
     Indication: BLOOD CHOLESTEROL
     Dosage: 10 MG PO DAILY
     Route: 048
     Dates: start: 20050411, end: 20050525

REACTIONS (1)
  - ASTHENIA [None]
